FAERS Safety Report 16499584 (Version 1)
Quarter: 2019Q3

REPORT INFORMATION
  Report Type: Spontaneous
  Country: US (occurrence: US)
  Receive Date: 20190701
  Receipt Date: 20190701
  Transmission Date: 20191004
  Serious: Yes (Other)
  Sender: FDA-Public Use
  Company Number: US-APOTEX-2019AP017164

PATIENT
  Sex: Female

DRUGS (1)
  1. MOXIFIOXACIN OPHTHALMIC SOLUTION USP [Suspect]
     Active Substance: MOXIFLOXACIN
     Indication: CORNEAL INFECTION
     Dosage: UNK
     Route: 047

REACTIONS (1)
  - Deafness unilateral [Not Recovered/Not Resolved]
